FAERS Safety Report 8845528 (Version 1)
Quarter: 2012Q4

REPORT INFORMATION
  Report Type: 
  Country: US (occurrence: US)
  Receive Date: 20121017
  Receipt Date: 20121017
  Transmission Date: 20130627
  Serious: No
  Sender: FDA-Public Use
  Company Number: US-ASTRAZENECA-2012SE72472

PATIENT

DRUGS (1)
  1. ATENOLOL [Suspect]
     Route: 065

REACTIONS (3)
  - Lacrimation increased [Unknown]
  - Erythema [Unknown]
  - Dry eye [Unknown]
